FAERS Safety Report 7998920-4 (Version None)
Quarter: 2011Q4

REPORT INFORMATION
  Report Type: 
  Country: None (occurrence: None)
  Receive Date: 20111221
  Receipt Date: 20111213
  Transmission Date: 20120403
  Serious: Yes (Hospitalization)
  Sender: FDA-Public Use
  Company Number: FR-GLAXOSMITHKLINE-B0768787A

PATIENT
  Sex: Male

DRUGS (1)
  1. ARIXTRA [Suspect]
     Indication: SPLENIC VEIN THROMBOSIS
     Dosage: 7.5MG PER DAY
     Route: 058
     Dates: start: 20111031, end: 20111123

REACTIONS (2)
  - INCORRECT DRUG ADMINISTRATION DURATION [None]
  - SHOCK HAEMORRHAGIC [None]
